FAERS Safety Report 9643129 (Version 5)
Quarter: 2014Q2

REPORT INFORMATION
  Report Type: Report from Study
  Country: CA (occurrence: CA)
  Receive Date: 20131024
  Receipt Date: 20140515
  Transmission Date: 20141212
  Serious: Yes (Other)
  Sender: FDA-Public Use
  Company Number: CA-ROCHE-1287733

PATIENT
  Age: 49 Year
  Sex: Female
  Weight: 72.6 kg

DRUGS (10)
  1. RITUXAN [Suspect]
     Indication: RHEUMATOID ARTHRITIS
     Dosage: MOST RECENT DOSE PRIOR TO SAE: 06/MAY/2010
     Route: 042
     Dates: start: 20080708
  2. HYDROXYCHLOROQUINE [Suspect]
     Indication: PRODUCT USED FOR UNKNOWN INDICATION
     Route: 065
     Dates: end: 2013
  3. ACETAMINOPHEN [Concomitant]
     Indication: PREMEDICATION
     Route: 048
     Dates: start: 20090910
  4. ACETAMINOPHEN [Concomitant]
     Route: 065
     Dates: start: 20100506
  5. ARTHROTEC [Concomitant]
  6. METHOTREXATE [Concomitant]
  7. FOLIC ACID [Concomitant]
  8. NORTRIPTYLINE [Concomitant]
     Dosage: AS REQUIRED
     Route: 065
  9. DIPHENHYDRAMINE HCL [Concomitant]
     Route: 048
     Dates: start: 20090910
  10. METHYLPREDNISOLONE [Concomitant]
     Route: 042
     Dates: start: 20090910

REACTIONS (7)
  - Eye disorder [Unknown]
  - Thermal burn [Not Recovered/Not Resolved]
  - Infusion related reaction [Recovered/Resolved]
  - Pain [Not Recovered/Not Resolved]
  - Fatigue [Not Recovered/Not Resolved]
  - Abdominal discomfort [Unknown]
  - Dry eye [Unknown]
